FAERS Safety Report 15301613 (Version 1)
Quarter: 2018Q3

REPORT INFORMATION
  Report Type: Spontaneous
  Country: CA (occurrence: CA)
  Receive Date: 20180821
  Receipt Date: 20180821
  Transmission Date: 20181010
  Serious: Yes (Hospitalization)
  Sender: FDA-Public Use
  Company Number: CA-PFIZER INC-2018328991

PATIENT
  Age: 72 Year
  Sex: Male

DRUGS (3)
  1. CARBOPLATIN. [Suspect]
     Active Substance: CARBOPLATIN
     Dosage: 4 CYCLES
     Dates: start: 20160425, end: 20160711
  2. HYDROMORPHONE HYDROCHLORIDE. [Concomitant]
     Active Substance: HYDROMORPHONE HYDROCHLORIDE
     Dosage: 9 MG, 2X/DAY
     Route: 048
  3. PEMETREXED. [Suspect]
     Active Substance: PEMETREXED
     Dosage: 4 CYCLES
     Dates: start: 20160425, end: 20160711

REACTIONS (2)
  - Pneumonia [Unknown]
  - Febrile neutropenia [Unknown]
